FAERS Safety Report 5220171-7 (Version None)
Quarter: 2007Q1

REPORT INFORMATION
  Report Type: 
  Country: None (occurrence: None)
  Receive Date: 20061201
  Receipt Date: 20060830
  Transmission Date: 20070707
  Serious: Yes (Other)
  Sender: FDA-Public Use
  Company Number: PHEH2006US11209

PATIENT
  Sex: Male

DRUGS (1)
  1. LAMISIL [Suspect]

REACTIONS (4)
  - AGEUSIA [None]
  - DYSGEUSIA [None]
  - EATING DISORDER SYMPTOM [None]
  - WEIGHT DECREASED [None]
